FAERS Safety Report 6996704-7 (Version None)
Quarter: 2010Q3

REPORT INFORMATION
  Report Type: 
  Country: None (occurrence: None)
  Receive Date: 20100918
  Receipt Date: 20091007
  Transmission Date: 20110219
  Serious: No
  Sender: FDA-Public Use
  Company Number: US-WYE-H09897809

PATIENT
  Sex: Female
  Weight: 53.12 kg

DRUGS (3)
  1. EFFEXOR XR [Suspect]
     Indication: DEPRESSION
     Dosage: 75 MG DAILY ON UNKNOWN START DATE
     Route: 048
  2. EFFEXOR XR [Suspect]
     Dosage: RESTARTED ON JAN-2009 AT 75 MG DAILY AFTER AN UNKNOWN DURATION
     Route: 048
  3. SIMVASTATIN [Concomitant]

REACTIONS (4)
  - ASTHENIA [None]
  - DRUG WITHDRAWAL SYNDROME [None]
  - EAR DISCOMFORT [None]
  - HYPOTHYROIDISM [None]
